FAERS Safety Report 17713130 (Version 1)
Quarter: 2020Q2

REPORT INFORMATION
  Report Type: Spontaneous
  Country: US (occurrence: US)
  Receive Date: 20200425
  Receipt Date: 20200425
  Transmission Date: 20200714
  Serious: Yes (Hospitalization)
  Sender: FDA-Public Use
  Company Number: None

PATIENT
  Sex: Female
  Weight: 50.6 kg

DRUGS (1)
  1. LACTOBACILLUS PLANTARUM 299V(795143) [Suspect]
     Active Substance: LACTOBACILLUS PLANTARUM
     Dates: end: 20200417

REACTIONS (6)
  - Bone marrow transplant [None]
  - Cytomegalovirus infection reactivation [None]
  - Eye discharge [None]
  - Rash [None]
  - Graft versus host disease [None]
  - Secretion discharge [None]

NARRATIVE: CASE EVENT DATE: 20200417
